FAERS Safety Report 4644819-0 (Version None)
Quarter: 2005Q2

REPORT INFORMATION
  Report Type: 
  Country: None (occurrence: None)
  Receive Date: 20050422
  Receipt Date: 20050412
  Transmission Date: 20051028
  Serious: Yes (Other)
  Sender: FDA-Public Use
  Company Number: 2005060106

PATIENT
  Age: 39 Year
  Sex: Female

DRUGS (1)
  1. DEPO-PROVERA [Suspect]
     Indication: ILL-DEFINED DISORDER
     Dosage: 1ST INJECTION, INTRAMUSCULAR
     Route: 030
     Dates: start: 20050101, end: 20050101

REACTIONS (1)
  - MYOCARDIAL INFARCTION [None]
